FAERS Safety Report 6619617-9 (Version None)
Quarter: 2010Q1

REPORT INFORMATION
  Report Type: 
  Country: None (occurrence: None)
  Receive Date: 20100309
  Receipt Date: 20100303
  Transmission Date: 20100710
  Serious: Yes (Other)
  Sender: FDA-Public Use
  Company Number: JP-ALLERGAN-1001052US

PATIENT
  Age: 67 Year
  Sex: Male

DRUGS (3)
  1. BOTULINUM TOXIN TYPE A [Suspect]
     Indication: TORTICOLLIS
     Dosage: 130 UNITS, SINGLE
     Route: 030
     Dates: start: 20091216, end: 20091216
  2. BOTULINUM TOXIN TYPE A [Suspect]
     Dosage: 60 UNITS, SINGLE
     Route: 030
     Dates: start: 20090916, end: 20090916
  3. BOTULINUM TOXIN TYPE A [Suspect]
     Dosage: 80 UNITS, SINGLE
     Route: 030
     Dates: start: 20091014, end: 20091014

REACTIONS (6)
  - BLOOD PRESSURE DECREASED [None]
  - BRADYCARDIA [None]
  - CHEST DISCOMFORT [None]
  - COLD SWEAT [None]
  - FEELING ABNORMAL [None]
  - SHOCK [None]
